FAERS Safety Report 15952330 (Version 1)
Quarter: 2019Q1

REPORT INFORMATION
  Report Type: Spontaneous
  Country: CN (occurrence: CN)
  Receive Date: 20190211
  Receipt Date: 20190211
  Transmission Date: 20190417
  Serious: Yes (Hospitalization)
  Sender: FDA-Public Use
  Company Number: CN-OXFORD PHARMACEUTICALS, LLC-2019OXF00010

PATIENT
  Age: 65 Year
  Sex: Female

DRUGS (3)
  1. MYCOPHENOLATE [Suspect]
     Active Substance: MYCOPHENOLIC ACID
     Indication: PROPHYLAXIS AGAINST TRANSPLANT REJECTION
     Dosage: 180 MG, 2X/DAY
     Route: 048
  2. PREDNISOLONE. [Suspect]
     Active Substance: PREDNISOLONE
     Indication: PROPHYLAXIS AGAINST TRANSPLANT REJECTION
     Dosage: 10 MG, 2X/DAY
     Route: 065
  3. TACROLIMUS. [Suspect]
     Active Substance: TACROLIMUS
     Indication: PROPHYLAXIS AGAINST TRANSPLANT REJECTION
     Dosage: 1 MG, 2X/DAY
     Route: 048

REACTIONS (4)
  - Pneumocystis jirovecii pneumonia [Unknown]
  - Pneumomediastinum [Unknown]
  - Pneumothorax [Recovered/Resolved]
  - Subcutaneous emphysema [Unknown]
